FAERS Safety Report 4280244-2 (Version None)
Quarter: 2004Q1

REPORT INFORMATION
  Report Type: 
  Country: None (occurrence: None)
  Receive Date: 20040123
  Receipt Date: 20040110
  Transmission Date: 20041129
  Serious: Yes (Other)
  Sender: FDA-Public Use
  Company Number: 2003114124

PATIENT
  Age: 43 Year
  Sex: Male
  Weight: 83.9154 kg

DRUGS (5)
  1. DILANTIN [Suspect]
     Indication: CONVULSION
     Dates: start: 19950101
  2. LIPITOR [Suspect]
     Indication: BLOOD CHOLESTEROL INCREASED
     Dosage: 60 MG (DAILY), ORAL
     Route: 048
     Dates: start: 20030101
  3. EZETIMIBE (EZETIMIBE) [Suspect]
     Indication: BLOOD CHOLESTEROL INCREASED
     Dosage: 10 MG (DAILY)
     Dates: start: 20030101
  4. PENICILLIN [Suspect]
     Indication: ILL-DEFINED DISORDER
  5. SULFUR (SULFUR) [Suspect]
     Indication: ILL-DEFINED DISORDER
     Dates: start: 19970101

REACTIONS (4)
  - CAUSTIC INJURY [None]
  - CONDITION AGGRAVATED [None]
  - DRUG HYPERSENSITIVITY [None]
  - PETIT MAL EPILEPSY [None]
